FAERS Safety Report 10056256 (Version 1)
Quarter: 2014Q2

REPORT INFORMATION
  Report Type: Spontaneous
  Country: US (occurrence: None)
  Receive Date: 20140401
  Receipt Date: 20140401
  Transmission Date: 20141212
  Serious: Yes (Other)
  Sender: FDA-Public Use
  Company Number: 001696736A

PATIENT
  Age: 22 Year
  Sex: Male

DRUGS (6)
  1. PROACTIV + SKIN SMOOTHING EXFOLIATOR [Suspect]
     Indication: ACNE
     Dosage: TWICE DAILY DERMAL
     Dates: start: 20140228, end: 20140307
  2. PROACTIV + PORE TARGETING TREATMENT [Suspect]
     Indication: ACNE
     Dosage: TWICE DAILY DERMAL
     Dates: start: 20140228, end: 20140303
  3. PROACTIV + SMOOTHING SHAVE GEL [Suspect]
     Indication: ACNE
     Dosage: TWICE DAILY DERMAL
     Dates: start: 20140228, end: 20140307
  4. PROACTIV + SKIN PURIFYING MASK [Suspect]
     Indication: ACNE
     Dosage: TWICE DAILY DERMAL
     Dates: start: 20140228, end: 20140307
  5. PROACTIV + COMPLEXION PERFECTING HYDRATOR [Suspect]
     Indication: ACNE
     Dosage: TWICE DAILY DERMAL
     Dates: start: 20140228, end: 20140307
  6. PROACTIV + CLEANSING BODY BAR [Suspect]
     Indication: ACNE
     Dosage: TWICE DAILY DERMAL
     Dates: start: 20140228, end: 20140307

REACTIONS (5)
  - Dry eye [None]
  - Eye pain [None]
  - Eye irritation [None]
  - Eye disorder [None]
  - Eye operation [None]
